FAERS Safety Report 18489744 (Version 1)
Quarter: 2020Q4

REPORT INFORMATION
  Report Type: Spontaneous
  Country: FR (occurrence: FR)
  Receive Date: 20201111
  Receipt Date: 20201111
  Transmission Date: 20210114
  Serious: Yes (Other)
  Sender: FDA-Public Use
  Company Number: FR-PFIZER INC-2020443243

PATIENT
  Sex: Male

DRUGS (2)
  1. TOVIAZ [Suspect]
     Active Substance: FESOTERODINE FUMARATE
     Indication: PROSTATIC DISORDER
     Dosage: 4 MG, 1X/DAY (EVENING)
  2. UROREC [Suspect]
     Active Substance: SILODOSIN
     Dosage: UNK

REACTIONS (5)
  - Off label use [Unknown]
  - Somnolence [Unknown]
  - Erectile dysfunction [Unknown]
  - Product use in unapproved indication [Unknown]
  - Thirst [Unknown]
